FAERS Safety Report 9392766 (Version 1)
Quarter: 2013Q3

REPORT INFORMATION
  Report Type: Report from Study
  Country: FR (occurrence: FR)
  Receive Date: 20130710
  Receipt Date: 20130710
  Transmission Date: 20140515
  Serious: Yes (Other)
  Sender: FDA-Public Use
  Company Number: FR-COVIDIEN/TYCO HEALTHCARE/MALLINCKRODT-T201303690

PATIENT
  Age: 63 Year
  Sex: Male

DRUGS (3)
  1. OPTIRAY 350 [Suspect]
     Indication: COMPUTERISED TOMOGRAM
     Dosage: UNK, (1 IN 1 D), 1.6ML/S
     Route: 065
     Dates: start: 20130620, end: 20130620
  2. SOLUPRED                           /00016201/ [Concomitant]
     Indication: PREMEDICATION
     Route: 065
  3. CLARYTINE [Concomitant]
     Indication: PREMEDICATION
     Dosage: UNK
     Route: 065

REACTIONS (1)
  - Type I hypersensitivity [Recovered/Resolved]
